FAERS Safety Report 5233083-X (Version None)
Quarter: 2007Q1

REPORT INFORMATION
  Report Type: 
  Country: None (occurrence: None)
  Receive Date: 20061204
  Receipt Date: 20061017
  Transmission Date: 20070707
  Serious: No
  Sender: FDA-Public Use
  Company Number: 2006-BP-12214BP

PATIENT
  Age: 49 Year
  Sex: Male

DRUGS (11)
  1. SPIRIVA [Suspect]
     Indication: ASTHMA
     Dosage: 18 MCG (18 MCG,1 IN 1 D),IH
  2. SPIRIVA [Suspect]
  3. SPIRIVA [Suspect]
  4. NORVASC [Concomitant]
  5. PEROXITINE(ALL OTHER THERAPEUTIC PRODUCTS) [Concomitant]
  6. PRAVASTATIN [Concomitant]
  7. ISOSORBIDE (ISOSORBIDE) [Concomitant]
  8. ASPIRIN [Concomitant]
  9. IBUPROFEN [Concomitant]
  10. PRILOSEC [Concomitant]
  11. FLONASE [Concomitant]

REACTIONS (4)
  - DRUG INEFFECTIVE [None]
  - DRY MOUTH [None]
  - DYSPNOEA [None]
  - WHEEZING [None]
